FAERS Safety Report 25144280 (Version 1)
Quarter: 2025Q2

REPORT INFORMATION
  Report Type: Spontaneous
  Country: US (occurrence: US)
  Receive Date: 20250401
  Receipt Date: 20250401
  Transmission Date: 20250717
  Serious: Yes (Other)
  Sender: AMGEN
  Company Number: US-AMGEN-USASP2025059664

PATIENT

DRUGS (1)
  1. IVABRADINE [Suspect]
     Active Substance: IVABRADINE
     Indication: Cardiac failure
     Route: 065

REACTIONS (1)
  - Atrial fibrillation [Unknown]
